FAERS Safety Report 7246083 (Version 2)
Quarter: 2019Q4

REPORT INFORMATION
  Report Type: Spontaneous
  Country: US (occurrence: US)
  Receive Date: 20100114
  Receipt Date: 20191015
  Transmission Date: 20200122
  Serious: Yes (Hospitalization, Other)
  Sender: FDA-Public Use
  Company Number: US-PFIZER INC-2009274337

PATIENT
  Age: 55 Year
  Sex: Male
  Weight: 88.4 kg

DRUGS (1)
  1. GEODON [Suspect]
     Active Substance: ZIPRASIDONE HYDROCHLORIDE\ZIPRASIDONE MESYLATE
     Indication: BIPOLAR DISORDER
     Dosage: UNK
     Route: 048
     Dates: start: 2005

REACTIONS (6)
  - Therapy non-responder [Unknown]
  - Feeling abnormal [Unknown]
  - Mania [Unknown]
  - Mood swings [Unknown]
  - Depression [Unknown]
  - Sedation [Recovered/Resolved]
